FAERS Safety Report 8885174 (Version 1)
Quarter: 2012Q4

REPORT INFORMATION
  Report Type: 
  Country: US (occurrence: US)
  Receive Date: 20121102
  Receipt Date: 20121102
  Transmission Date: 20130627
  Serious: Yes (Other)
  Sender: FDA-Public Use
  Company Number: US-ELI_LILLY_AND_COMPANY-US201210009046

PATIENT
  Age: 45 Year
  Sex: Male

DRUGS (3)
  1. ZYPREXA RELPREVV [Suspect]
     Dosage: 300 mg, 2/M
     Route: 030
     Dates: start: 20120920
  2. FLUOXETINE [Concomitant]
     Dosage: 20 mg, UNK
  3. PHENOBARBITAL [Concomitant]
     Dosage: 30 mg, UNK

REACTIONS (1)
  - Appendiceal abscess [Not Recovered/Not Resolved]
